FAERS Safety Report 9270471 (Version 1)
Quarter: 2013Q2

REPORT INFORMATION
  Report Type: Spontaneous
  Country: BR (occurrence: BR)
  Receive Date: 20130503
  Receipt Date: 20130503
  Transmission Date: 20140414
  Serious: Yes (Other)
  Sender: FDA-Public Use
  Company Number: BR-PFIZER INC-2013132474

PATIENT
  Age: 52 Year
  Sex: Female
  Weight: 67 kg

DRUGS (2)
  1. LYRICA [Suspect]
     Indication: BONE PAIN
     Dosage: 75 MG (ONE CAPSULE), 1X/DAY (AT NIGHT)
     Route: 048
  2. LYRICA [Suspect]
     Indication: TENDONITIS

REACTIONS (9)
  - Off label use [Recovered/Resolved]
  - Hypothyroidism [Unknown]
  - Gait disturbance [Unknown]
  - Vomiting [Not Recovered/Not Resolved]
  - Feeling abnormal [Unknown]
  - Dizziness [Not Recovered/Not Resolved]
  - Diarrhoea [Unknown]
  - Head discomfort [Unknown]
  - Tremor [Unknown]
